FAERS Safety Report 23762956 (Version 3)
Quarter: 2024Q2

REPORT INFORMATION
  Report Type: Spontaneous
  Country: US (occurrence: US)
  Receive Date: 20240419
  Receipt Date: 20240423
  Transmission Date: 20240716
  Serious: No
  Sender: FDA-Public Use
  Company Number: US-SA-SAC20240415000162

PATIENT
  Age: 59 Year
  Sex: Female
  Weight: 72.1 kg

DRUGS (18)
  1. DUPIXENT [Suspect]
     Active Substance: DUPILUMAB
     Indication: Eosinophilic oesophagitis
     Dosage: 300 MG, QW
     Route: 058
     Dates: start: 20240327, end: 20240403
  2. CEFDINIR [Suspect]
     Active Substance: CEFDINIR
     Dosage: UNK
     Route: 065
     Dates: start: 2024
  3. FLONASE ALLERGY RELIEF [Concomitant]
     Active Substance: FLUTICASONE PROPIONATE
  4. ALBUTEROL SULFATE [Concomitant]
     Active Substance: ALBUTEROL SULFATE
  5. CALCIUM [Concomitant]
     Active Substance: CALCIUM
  6. BIOTIN [Concomitant]
     Active Substance: BIOTIN
  7. OMEPRAZOLE [Concomitant]
     Active Substance: OMEPRAZOLE
  8. FAMOTIDINE [Concomitant]
     Active Substance: FAMOTIDINE
  9. BREZTRI [Concomitant]
     Active Substance: BUDESONIDE\FORMOTEROL\GLYCOPYRROLATE
  10. SIMVASTATIN [Concomitant]
     Active Substance: SIMVASTATIN
  11. XYZAL [Concomitant]
     Active Substance: LEVOCETIRIZINE DIHYDROCHLORIDE
  12. PRIMIDONE [Concomitant]
     Active Substance: PRIMIDONE
  13. PROPRANOLOL HYDROCHLORIDE [Concomitant]
     Active Substance: PROPRANOLOL HYDROCHLORIDE
  14. ESTRADIOL [Concomitant]
     Active Substance: ESTRADIOL
  15. LEVOTHYROXINE SODIUM [Concomitant]
     Active Substance: LEVOTHYROXINE SODIUM
  16. VITAMIN D NOS [Concomitant]
     Active Substance: VITAMIN D NOS
  17. PROBIOTICS NOS [Concomitant]
     Active Substance: PROBIOTICS NOS
  18. CALCIUM\VITAMIN D [Concomitant]
     Active Substance: CALCIUM\VITAMIN D

REACTIONS (2)
  - Drug hypersensitivity [Unknown]
  - Rash [Unknown]

NARRATIVE: CASE EVENT DATE: 20240401
